FAERS Safety Report 4509729-8 (Version None)
Quarter: 2004Q4

REPORT INFORMATION
  Report Type: 
  Country: None (occurrence: None)
  Receive Date: 20041119
  Receipt Date: 20041103
  Transmission Date: 20050328
  Serious: Yes (Other)
  Sender: FDA-Public Use
  Company Number: 200408865

PATIENT
  Age: 53 Year
  Sex: Male
  Weight: 71.6683 kg

DRUGS (2)
  1. BOTOX PURIFIED NEUROTOXIN COMPLEX [Suspect]
     Indication: TORTICOLLIS
     Dosage: 300 UNITS PRN IM
     Route: 030
     Dates: start: 19960101
  2. ADVAIR [Concomitant]

REACTIONS (6)
  - BRONCHITIS [None]
  - DEAFNESS NEUROSENSORY [None]
  - DYSPHAGIA [None]
  - INFLUENZA LIKE ILLNESS [None]
  - LARYNGITIS [None]
  - TINNITUS [None]
